FAERS Safety Report 14190664 (Version 1)
Quarter: 2017Q4

REPORT INFORMATION
  Report Type: Spontaneous
  Country: GB (occurrence: GB)
  Receive Date: 20171114
  Receipt Date: 20171114
  Transmission Date: 20180321
  Serious: Yes (Disabling)
  Sender: FDA-Public Use
  Company Number: None

PATIENT
  Age: 41 Year
  Sex: Female
  Weight: 66.15 kg

DRUGS (1)
  1. BETNOVATE [Suspect]
     Active Substance: BETAMETHASONE
     Indication: ECZEMA
     Dosage: ?          QUANTITY:100 GRAMS;?
     Route: 061
     Dates: start: 19900101, end: 20160315

REACTIONS (12)
  - Pruritus [None]
  - Erythema [None]
  - Sleep disorder [None]
  - Chills [None]
  - Anxiety [None]
  - Skin irritation [None]
  - Drug effect decreased [None]
  - Feeling cold [None]
  - Weight decreased [None]
  - Pain [None]
  - Fatigue [None]
  - Skin exfoliation [None]

NARRATIVE: CASE EVENT DATE: 20160901
